FAERS Safety Report 11827533 (Version 2)
Quarter: 2016Q1

REPORT INFORMATION
  Report Type: Spontaneous
  Country: PK (occurrence: PK)
  Receive Date: 20151211
  Receipt Date: 20160114
  Transmission Date: 20160525
  Serious: Yes (Other)
  Sender: FDA-Public Use
  Company Number: PK-SA-2015SA205831

PATIENT
  Age: 71 Year
  Sex: Male
  Weight: 74 kg

DRUGS (4)
  1. VASTAREL [Concomitant]
     Active Substance: TRIMETAZIDINE DIHYDROCHLORIDE
     Indication: PROPHYLAXIS
     Route: 048
     Dates: start: 20100728
  2. STAT-A [Concomitant]
     Indication: HYPERTENSION
     Route: 048
     Dates: start: 20100728
  3. ASCARD [Concomitant]
     Indication: HYPERTENSION
     Route: 048
     Dates: start: 20100728
  4. PLAVIX [Suspect]
     Active Substance: CLOPIDOGREL BISULFATE
     Indication: HYPERTENSION
     Route: 048
     Dates: start: 20100728

REACTIONS (5)
  - Headache [Unknown]
  - Memory impairment [Unknown]
  - Seizure [Recovering/Resolving]
  - Dyspnoea [Unknown]
  - Hyperhidrosis [Unknown]

NARRATIVE: CASE EVENT DATE: 201007
